FAERS Safety Report 21936569 (Version 2)
Quarter: 2024Q2

REPORT INFORMATION
  Report Type: Spontaneous
  Country: US (occurrence: US)
  Receive Date: 20230201
  Receipt Date: 20240418
  Transmission Date: 20240716
  Serious: No
  Sender: FDA-Public Use
  Company Number: US-AMGEN-USASP2023017256

PATIENT
  Sex: Female

DRUGS (1)
  1. OTEZLA [Suspect]
     Active Substance: APREMILAST
     Indication: Psoriasis
     Dosage: 30 MILLIGRAM, BID
     Route: 048
     Dates: start: 20220823

REACTIONS (8)
  - Psoriasis [Unknown]
  - Therapy non-responder [Unknown]
  - Alopecia [Unknown]
  - Headache [Unknown]
  - Product dose omission issue [Unknown]
  - Discomfort [Unknown]
  - Pain [Unknown]
  - Loss of personal independence in daily activities [Unknown]
